FAERS Safety Report 13406142 (Version 2)
Quarter: 2017Q2

REPORT INFORMATION
  Report Type: Spontaneous
  Country: FR (occurrence: FR)
  Receive Date: 20170405
  Receipt Date: 20170426
  Transmission Date: 20170830
  Serious: Yes (Other)
  Sender: FDA-Public Use
  Company Number: FR-SYNTHON BV-NL01PV17_43344

PATIENT
  Age: 63 Year
  Sex: Male
  Weight: 90 kg

DRUGS (1)
  1. TAMSULOSINE BIOGARAN [Suspect]
     Active Substance: TAMSULOSIN
     Indication: BENIGN PROSTATIC HYPERPLASIA
     Dosage: 1 DF (0.4 MG), D
     Route: 048
     Dates: start: 20161102

REACTIONS (1)
  - Hypertension [Not Recovered/Not Resolved]

NARRATIVE: CASE EVENT DATE: 20170106
